FAERS Safety Report 9613609 (Version 1)
Quarter: 2013Q4

REPORT INFORMATION
  Report Type: Spontaneous
  Country: JP (occurrence: None)
  Receive Date: 20131008
  Receipt Date: 20131008
  Transmission Date: 20140711
  Serious: Yes (Other)
  Sender: FDA-Public Use
  Company Number: JP-013204

PATIENT
  Sex: Male

DRUGS (1)
  1. GONAX [Suspect]
     Indication: PROSTATE CANCER
     Dosage: (80 MG 1X/4 WEEKS SUBCUTANEOUS)
     Route: 058

REACTIONS (3)
  - Pancytopenia [None]
  - Incorrect dose administered [None]
  - Treatment noncompliance [None]
